FAERS Safety Report 7277110-7 (Version None)
Quarter: 2011Q1

REPORT INFORMATION
  Report Type: 
  Country: None (occurrence: None)
  Receive Date: 20110202
  Receipt Date: 20110202
  Transmission Date: 20110831
  Serious: No
  Sender: FDA-Public Use
  Company Number: None

PATIENT
  Age: 61 Year
  Sex: Female
  Weight: 126 kg

DRUGS (1)
  1. CELEBREX [Suspect]
     Indication: POLYARTHRITIS
     Dosage: 200 MG BID PO
     Route: 048
     Dates: start: 20101201, end: 20110119

REACTIONS (7)
  - MUSCLE SPASMS [None]
  - SPEECH DISORDER [None]
  - DYSPNOEA [None]
  - JOINT SWELLING [None]
  - INSOMNIA [None]
  - TACHYCARDIA [None]
  - TINNITUS [None]
